FAERS Safety Report 8510615-7 (Version None)
Quarter: 2012Q3

REPORT INFORMATION
  Report Type: 
  Country: None (occurrence: None)
  Receive Date: 20120716
  Receipt Date: 20120705
  Transmission Date: 20120928
  Serious: No
  Sender: FDA-Public Use
  Company Number: US-BIOGENIDEC-2012BI022624

PATIENT
  Age: 57 Year
  Sex: Male

DRUGS (1)
  1. AVONEX [Suspect]
     Indication: MULTIPLE SCLEROSIS
     Route: 030
     Dates: start: 20120501

REACTIONS (7)
  - MUSCULOSKELETAL STIFFNESS [None]
  - FEELING DRUNK [None]
  - PARAESTHESIA [None]
  - FEAR [None]
  - INFLUENZA LIKE ILLNESS [None]
  - CONTUSION [None]
  - PAIN IN EXTREMITY [None]
